FAERS Safety Report 16953886 (Version 1)
Quarter: 2019Q4

REPORT INFORMATION
  Report Type: Spontaneous
  Country: US (occurrence: US)
  Receive Date: 20191023
  Receipt Date: 20191023
  Transmission Date: 20200122
  Serious: No
  Sender: FDA-Public Use
  Company Number: US-TARO-2019TAR00680

PATIENT
  Sex: Female

DRUGS (1)
  1. CLOBETASOL PROPIONATE FOAM 0.05% [Suspect]
     Active Substance: CLOBETASOL PROPIONATE
     Dosage: UNK
     Route: 061

REACTIONS (2)
  - Intentional product misuse [Not Recovered/Not Resolved]
  - Application site pain [Not Recovered/Not Resolved]
